FAERS Safety Report 8390853-7 (Version None)
Quarter: 2012Q2

REPORT INFORMATION
  Report Type: 
  Country: None (occurrence: None)
  Receive Date: 20120529
  Receipt Date: 20120510
  Transmission Date: 20120825
  Serious: Yes (Other)
  Sender: FDA-Public Use
  Company Number: CA-ASTRAZENECA-2012SE29638

PATIENT
  Age: 45 Year
  Sex: Female

DRUGS (7)
  1. CANDESARTAN CILEXETIL [Suspect]
     Dosage: GENERIC FROM SANDOZ 8 MG ONCE DAILY
     Route: 048
     Dates: start: 20111205, end: 20111201
  2. RABEPRAZOLE SODIUM [Concomitant]
     Route: 048
     Dates: start: 20100601
  3. CANDESARTAN CILEXETIL [Suspect]
     Dosage: GENERIC FROM COBALT 16 MG ONCE DAILY
     Route: 048
     Dates: start: 20120330
  4. SYNTHROID [Concomitant]
     Route: 048
     Dates: start: 20070401
  5. NARATRIPTAN [Concomitant]
     Route: 048
     Dates: start: 20050101
  6. CANDESARTAN CILEXETIL [Suspect]
     Dosage: GENERIC FROM SANDOZ 16 MG ONCE DAILY
     Route: 048
     Dates: start: 20111201, end: 20120229
  7. INDERAL LA [Concomitant]
     Route: 048
     Dates: start: 20081101

REACTIONS (4)
  - BURNING SENSATION [None]
  - ERYTHEMA [None]
  - SKIN IRRITATION [None]
  - DERMATITIS ALLERGIC [None]
